FAERS Safety Report 6453202-7 (Version None)
Quarter: 2009Q4

REPORT INFORMATION
  Report Type: 
  Country: None (occurrence: None)
  Receive Date: 20091124
  Receipt Date: 20091119
  Transmission Date: 20100525
  Serious: Yes (Hospitalization)
  Sender: FDA-Public Use
  Company Number: FR-KINGPHARMUSA00001-K200901453

PATIENT
  Age: 44 Year
  Sex: Female

DRUGS (1)
  1. TILADE [Suspect]
     Indication: ASTHMA
     Dosage: 20 MG, QD
     Dates: start: 20091031, end: 20091102

REACTIONS (2)
  - ANGIOEDEMA [None]
  - URTICARIA [None]
